FAERS Safety Report 9714242 (Version 3)
Quarter: 2015Q3

REPORT INFORMATION
  Report Type: Spontaneous
  Country: US (occurrence: US)
  Receive Date: 20131126
  Receipt Date: 20150803
  Transmission Date: 20151125
  Serious: No
  Sender: FDA-Public Use
  Company Number: US-GILEAD-2008-0019106

PATIENT
  Age: 78 Year
  Sex: Female
  Weight: 84.37 kg

DRUGS (18)
  1. LETAIRIS [Suspect]
     Active Substance: AMBRISENTAN
     Indication: PULMONARY ARTERIAL HYPERTENSION
     Route: 048
     Dates: start: 20080411, end: 20081214
  2. LETAIRIS [Suspect]
     Active Substance: AMBRISENTAN
     Route: 048
     Dates: start: 20081215
  3. LUMIGAN 0.03% [Concomitant]
  4. ASA [Concomitant]
     Active Substance: ASPIRIN
  5. TRUSOPT 2% [Concomitant]
  6. FISH OIL [Concomitant]
     Active Substance: FISH OIL
  7. CALCIUM [Concomitant]
     Active Substance: CALCIUM
  8. TOPROL XL [Concomitant]
     Active Substance: METOPROLOL SUCCINATE
  9. MAG OXIDE [Concomitant]
     Active Substance: MAGNESIUM OXIDE
  10. LASIX [Concomitant]
     Active Substance: FUROSEMIDE
  11. MEVACOR [Concomitant]
     Active Substance: LOVASTATIN
  12. DILTIAZEM [Concomitant]
     Active Substance: DILTIAZEM
  13. TRACLEER [Concomitant]
     Active Substance: BOSENTAN
  14. PRILOSEC [Concomitant]
     Active Substance: OMEPRAZOLE MAGNESIUM
  15. GARLIC. [Concomitant]
     Active Substance: GARLIC
  16. ALPHAGAN P 0.1% [Concomitant]
  17. SYNTHROID [Concomitant]
     Active Substance: LEVOTHYROXINE SODIUM
  18. KLOR-CON [Concomitant]
     Active Substance: POTASSIUM CHLORIDE

REACTIONS (4)
  - Blood pressure increased [Recovered/Resolved]
  - Liver function test abnormal [Recovered/Resolved]
  - Oedema peripheral [Recovered/Resolved]
  - Headache [Recovered/Resolved]

NARRATIVE: CASE EVENT DATE: 20081104
